FAERS Safety Report 10163730 (Version 1)
Quarter: 2014Q2

REPORT INFORMATION
  Report Type: Spontaneous
  Country: FR (occurrence: FR)
  Receive Date: 20140509
  Receipt Date: 20140509
  Transmission Date: 20141212
  Serious: Yes (Other)
  Sender: FDA-Public Use
  Company Number: FR-GILEAD-2014-0101582

PATIENT
  Age: 50 Year
  Sex: Male

DRUGS (4)
  1. TRUVADA [Suspect]
     Indication: HIV INFECTION
     Dosage: UNK
     Route: 048
     Dates: end: 20100121
  2. SUSTIVA [Concomitant]
     Indication: HIV INFECTION
     Dosage: UNK
  3. REYATAZ [Concomitant]
     Indication: HIV INFECTION
  4. RITONAVIR [Concomitant]
     Indication: HIV INFECTION

REACTIONS (2)
  - Osteoporosis [Not Recovered/Not Resolved]
  - Fanconi syndrome acquired [Recovered/Resolved]
